FAERS Safety Report 24236147 (Version 4)
Quarter: 2025Q1

REPORT INFORMATION
  Report Type: Report from Study
  Country: GB (occurrence: GB)
  Receive Date: 20240822
  Receipt Date: 20250313
  Transmission Date: 20250408
  Serious: No
  Sender: TAKEDA
  Company Number: GB-TAKEDA-2024TUS011961

PATIENT
  Sex: Female

DRUGS (1)
  1. HUMAN IMMUNOGLOBULIN G\HYALURONIDASE RECOMBINANT HUMAN [Suspect]
     Active Substance: HUMAN IMMUNOGLOBULIN G\HYALURONIDASE (HUMAN RECOMBINANT)
     Indication: Immunodeficiency

REACTIONS (11)
  - Device alarm issue [Unknown]
  - Device occlusion [Unknown]
  - Wrong technique in device usage process [Unknown]
  - Incorrect drug administration rate [Unknown]
  - Device power source issue [Unknown]
  - Device calibration failure [Unknown]
  - Infusion site pruritus [Unknown]
  - Infusion site swelling [Unknown]
  - Infusion site erythema [Unknown]
  - Malaise [Unknown]
  - Diarrhoea [Unknown]
